FAERS Safety Report 9471373 (Version 1)
Quarter: 2013Q3

REPORT INFORMATION
  Report Type: Spontaneous
  Country: IT (occurrence: None)
  Receive Date: 20130815
  Receipt Date: 20130815
  Transmission Date: 20140515
  Serious: Yes (Other)
  Sender: FDA-Public Use
  Company Number: KAD201308-00977

PATIENT
  Age: 50 Year
  Sex: Male

DRUGS (4)
  1. RIBAVIRIN (RIBAVIRIN) [Suspect]
     Indication: HEPATITIS C
  2. RIBAVIRIN (RIBAVIRIN) [Suspect]
     Indication: HEPATIC CIRRHOSIS
  3. INTERFERON ALFACON-1 (INTERFERON ALFACON-1) [Suspect]
     Indication: HEPATITIS C
  4. INTERFERON ALFACON-1 (INTERFERON ALFACON-1) [Suspect]
     Indication: HEPATIC CIRRHOSIS

REACTIONS (1)
  - Hepatocellular carcinoma [None]
